FAERS Safety Report 5454302-0 (Version None)
Quarter: 2007Q3

REPORT INFORMATION
  Report Type: 
  Country: None (occurrence: None)
  Receive Date: 20070917
  Receipt Date: 20070905
  Transmission Date: 20080115
  Serious: Yes (Other)
  Sender: FDA-Public Use
  Company Number: GB-PFIZER INC-2007074957

PATIENT

DRUGS (1)
  1. EPANUTIN [Suspect]

REACTIONS (1)
  - GASTROINTESTINAL TUBE INSERTION [None]
